FAERS Safety Report 9562830 (Version 1)
Quarter: 2013Q3

REPORT INFORMATION
  Report Type: Spontaneous
  Country: TR (occurrence: TR)
  Receive Date: 20130927
  Receipt Date: 20130927
  Transmission Date: 20140515
  Serious: Yes (Other)
  Sender: FDA-Public Use
  Company Number: TR-BAXTER-2013BAX037209

PATIENT
  Sex: Female
  Weight: 2.6 kg

DRUGS (1)
  1. KIOVIG 2.5/25 ML IV INF?ZYON I?IN ??ZELTI I?EREN FLAKON [Suspect]
     Indication: JAUNDICE
     Dosage: 1/G/KG OVER 3 HOURS
     Route: 042

REACTIONS (1)
  - Necrotising colitis [Recovering/Resolving]
